FAERS Safety Report 21651679 (Version 2)
Quarter: 2022Q4

REPORT INFORMATION
  Report Type: Spontaneous
  Country: JP (occurrence: JP)
  Receive Date: 20221128
  Receipt Date: 20221207
  Transmission Date: 20230113
  Serious: Yes (Hospitalization, Other)
  Sender: FDA-Public Use
  Company Number: JP-OTSUKA-2022_052621

PATIENT
  Age: 8 Decade
  Sex: Female

DRUGS (1)
  1. ABILIFY [Suspect]
     Active Substance: ARIPIPRAZOLE
     Indication: Schizophrenia
     Dosage: UNK, ONCE-MONTHLY
     Route: 065

REACTIONS (2)
  - Behaviour disorder [Unknown]
  - Hallucination, auditory [Unknown]
